FAERS Safety Report 15184681 (Version 3)
Quarter: 2018Q3

REPORT INFORMATION
  Report Type: Spontaneous
  Country: ES (occurrence: ES)
  Receive Date: 20180723
  Receipt Date: 20180831
  Transmission Date: 20181010
  Serious: Yes (Other)
  Sender: FDA-Public Use
  Company Number: ES-009507513-1807ESP007431

PATIENT
  Age: 30 Year
  Sex: Female
  Weight: 74.3 kg

DRUGS (2)
  1. NUVARING [Suspect]
     Active Substance: ETHINYL ESTRADIOL\ETONOGESTREL
     Indication: CONTRACEPTION
     Dosage: 1 DF, UNK
     Route: 067
     Dates: start: 201701
  2. NUVARING [Suspect]
     Active Substance: ETHINYL ESTRADIOL\ETONOGESTREL
     Dosage: 1 DF, UNK
     Route: 067
     Dates: start: 20180614, end: 20180705

REACTIONS (7)
  - Metrorrhagia [Unknown]
  - Pregnancy with contraceptive device [Not Recovered/Not Resolved]
  - Abdominal pain [Unknown]
  - Unintended pregnancy [Not Recovered/Not Resolved]
  - Uterine leiomyoma [Unknown]
  - Metrorrhagia [Unknown]
  - Hypomenorrhoea [Unknown]

NARRATIVE: CASE EVENT DATE: 201805
